FAERS Safety Report 9118825 (Version 4)
Quarter: 2013Q4

REPORT INFORMATION
  Report Type: Spontaneous
  Country: IE (occurrence: IE)
  Receive Date: 20130226
  Receipt Date: 20131011
  Transmission Date: 20140711
  Serious: Yes (Death, Other)
  Sender: FDA-Public Use
  Company Number: PHFR2013IE001180

PATIENT
  Age: 74 Year
  Sex: Male
  Weight: 66 kg

DRUGS (6)
  1. CLOZARIL [Suspect]
     Indication: SCHIZOPHRENIA
     Dosage: 50 MG, DAILY
     Route: 048
     Dates: start: 20110824
  2. CLOZARIL [Suspect]
     Dosage: 25 MG
     Dates: start: 20130210
  3. DIAZEPAM [Concomitant]
     Dosage: 15 MG, (10 MG NOCTE AND 5 MG MANE)
  4. MIRTAZAPINE [Concomitant]
     Dosage: 60 MG, NOCTE
  5. DULOXETINE [Concomitant]
     Dosage: 90 MG, MANE
  6. TEMAZEPAM [Concomitant]
     Dosage: 20 MG, NOCTE

REACTIONS (10)
  - Brain neoplasm [Fatal]
  - Metastases to central nervous system [Fatal]
  - Non-small cell lung cancer [Fatal]
  - Lung neoplasm malignant [Fatal]
  - Terminal state [Fatal]
  - Anaemia [Fatal]
  - Pulmonary mass [Unknown]
  - Platelet count increased [Unknown]
  - White blood cell count increased [Unknown]
  - Neutrophil count increased [Unknown]
